FAERS Safety Report 9217252 (Version 1)
Quarter: 2013Q1

REPORT INFORMATION
  Report Type: Spontaneous
  Country: US (occurrence: None)
  Receive Date: 20120827
  Receipt Date: 20120827
  Transmission Date: 20140127
  Serious: No
  Sender: FDA-Public Use
  Company Number: 353314

PATIENT
  Age: 43 Year
  Sex: Male

DRUGS (2)
  1. NOVOLOG FLEX PEN [Suspect]
     Indication: TYPE 2 DIABETES MELLITUS
     Route: 058
  2. VICTOZA (LIRAGLUTIDE) SOLUTION FOR INJECTION, 6MG/ML [Suspect]
     Indication: TYPE 2 DIABETES MELLITUS
     Route: 058

REACTIONS (4)
  - Fatigue [None]
  - Asthenia [None]
  - Weight increased [None]
  - Blood glucose increased [None]
